FAERS Safety Report 9511450 (Version 1)
Quarter: 2013Q1

REPORT INFORMATION
  Report Type: Spontaneous
  Country: US (occurrence: None)
  Receive Date: 20130305
  Receipt Date: 20130305
  Transmission Date: 20140127
  Serious: Yes (Other)
  Sender: FDA-Public Use
  Company Number: 163-21880-11100280

PATIENT
  Age: 65 Year
  Sex: Male

DRUGS (4)
  1. REVLIMID (LENALIDOMIDE) (25 MILLIGRAM, CAPSULES) [Suspect]
     Indication: PLASMA CELL MYELOMA
     Dosage: 25 MG, DAILY X 21/28, PO
     Route: 048
     Dates: start: 20110114, end: 20110701
  2. ARANESP (DARBEPOETIN ALFA) [Concomitant]
  3. ZOMETA (ZOLEDRONIC ACID) [Concomitant]
  4. LORTAB (VICODIN) [Concomitant]

REACTIONS (6)
  - Neutrophil count decreased [None]
  - Red blood cell count decreased [None]
  - Paraesthesia [None]
  - Muscle spasms [None]
  - Hypoaesthesia [None]
  - White blood cell count decreased [None]
